FAERS Safety Report 16266256 (Version 1)
Quarter: 2019Q2

REPORT INFORMATION
  Report Type: Report from Study
  Country: US (occurrence: US)
  Receive Date: 20190502
  Receipt Date: 20190502
  Transmission Date: 20190711
  Serious: Yes (Other)
  Sender: FDA-Public Use
  Company Number: US-ACTELION-A-NJ2019-186674

PATIENT
  Age: 89 Year
  Sex: Female
  Weight: 71.2 kg

DRUGS (4)
  1. ELIQUIS [Concomitant]
     Active Substance: APIXABAN
  2. OPSUMIT [Suspect]
     Active Substance: MACITENTAN
     Indication: PULMONARY HYPERTENSION
     Dosage: 10 MG, QD
     Route: 048
  3. ADCIRCA [Concomitant]
     Active Substance: TADALAFIL
  4. OXYGEN. [Concomitant]
     Active Substance: OXYGEN
     Route: 045

REACTIONS (14)
  - Pulmonary embolism [Unknown]
  - Oxygen saturation decreased [Unknown]
  - Haemorrhoids [Unknown]
  - Weight fluctuation [Unknown]
  - Oedema [Unknown]
  - Tooth disorder [Unknown]
  - Unevaluable event [Unknown]
  - Nocturnal dyspnoea [Unknown]
  - Vena cava filter removal [Unknown]
  - Dyspnoea [Unknown]
  - Rhinorrhoea [Unknown]
  - Vena cava filter insertion [Unknown]
  - Nasal congestion [Unknown]
  - Peripheral swelling [Unknown]

NARRATIVE: CASE EVENT DATE: 20190211
